FAERS Safety Report 9515669 (Version 1)
Quarter: 2013Q1

REPORT INFORMATION
  Report Type: Spontaneous
  Country: US (occurrence: None)
  Receive Date: 20130305
  Receipt Date: 20130305
  Transmission Date: 20140127
  Serious: Yes (Hospitalization)
  Sender: FDA-Public Use
  Company Number: 163-21880-12120794

PATIENT
  Age: 82 Year
  Sex: Female

DRUGS (7)
  1. REVLIMID (LENALIDOMIDE) (25 MILLIGRAM, CAPSULES) [Suspect]
     Indication: PLASMA CELL MYELOMA
     Dosage: 21 IN 21 D
     Route: 048
     Dates: start: 20121107
  2. SYNTHROID (LEVOTHYROXINE SODIUM) [Concomitant]
  3. OMEPRAZOLE (OMEPRAZOLE) [Concomitant]
  4. LORTAB (VICODIN) [Concomitant]
  5. LEVOTHYROXINE SODIUM (LEVOTHYROXINE SODIUM) [Concomitant]
  6. HYDROCODONE ACETAMINOPHEN (PROCET /USA/) [Concomitant]
  7. BUPROPION HCL (BUPROPION HYDROCHLORIDE) [Concomitant]

REACTIONS (1)
  - Dehydration [None]
